FAERS Safety Report 23088617 (Version 1)
Quarter: 2023Q4

REPORT INFORMATION
  Report Type: Report from Study
  Country: US (occurrence: US)
  Receive Date: 20231020
  Receipt Date: 20231020
  Transmission Date: 20240110
  Serious: Yes (Other)
  Sender: FDA-Public Use
  Company Number: US-GILEAD-2023-0647438

PATIENT
  Age: 58 Year
  Sex: Male

DRUGS (3)
  1. BICTEGRAVIR\EMTRICITABINE\TENOFOVIR ALAFENAMIDE [Suspect]
     Active Substance: BICTEGRAVIR\EMTRICITABINE\TENOFOVIR ALAFENAMIDE
     Indication: Product used for unknown indication
     Dosage: UNK
     Route: 065
  2. DUPIXENT [Concomitant]
     Active Substance: DUPILUMAB
     Dosage: 600 MG
     Route: 058
  3. DUPIXENT [Concomitant]
     Active Substance: DUPILUMAB
     Dosage: 300 MG, EVERY OTHER WEEK
     Route: 058
     Dates: start: 202303

REACTIONS (4)
  - Bipolar disorder [Unknown]
  - Systemic lupus erythematosus [Unknown]
  - Amnesia [Unknown]
  - Muscle fatigue [Unknown]
